FAERS Safety Report 9802023 (Version 1)
Quarter: 2014Q1

REPORT INFORMATION
  Report Type: Spontaneous
  Country: US (occurrence: US)
  Receive Date: 20140107
  Receipt Date: 20140107
  Transmission Date: 20141002
  Serious: No
  Sender: FDA-Public Use
  Company Number: US-BIOGENIDEC-2013BI116738

PATIENT
  Age: 58 Year
  Sex: Male
  Weight: 88 kg

DRUGS (14)
  1. TECFIDERA [Suspect]
     Indication: PRODUCT USED FOR UNKNOWN INDICATION
     Route: 048
     Dates: start: 20131015
  2. TECFIDERA [Suspect]
     Indication: PRODUCT USED FOR UNKNOWN INDICATION
     Route: 048
  3. NEURONTIN [Concomitant]
     Route: 048
  4. BACLOFEN [Concomitant]
     Route: 048
  5. PRILOSEC [Concomitant]
     Route: 048
  6. VICODIN [Concomitant]
     Route: 048
  7. ZOCOR [Concomitant]
     Route: 048
  8. HYDROCHLOROT [Concomitant]
     Route: 048
  9. PROVIGIL [Concomitant]
     Route: 048
  10. GLUCOSAMINE [Concomitant]
     Route: 048
  11. VIT D3 [Concomitant]
     Route: 048
  12. FLUTICASONE [Concomitant]
  13. FAMOTIDINE [Concomitant]
     Route: 048
  14. CLONAZEPAM [Concomitant]
     Route: 048

REACTIONS (5)
  - Fall [Recovered/Resolved]
  - Flushing [Not Recovered/Not Resolved]
  - Hot flush [Not Recovered/Not Resolved]
  - Diarrhoea [Unknown]
  - Multiple sclerosis relapse [Unknown]
